FAERS Safety Report 15049583 (Version 1)
Quarter: 2018Q2

REPORT INFORMATION
  Report Type: Spontaneous
  Country: CA (occurrence: CA)
  Receive Date: 20180622
  Receipt Date: 20180622
  Transmission Date: 20180711
  Serious: Yes (Life-Threatening, Hospitalization)
  Sender: FDA-Public Use
  Company Number: CA-TEVA-2018-CA-909770

PATIENT
  Age: 70 Year
  Sex: Female
  Weight: 58 kg

DRUGS (4)
  1. VITAMIN D [Concomitant]
     Active Substance: CHOLECALCIFEROL
  2. LYRICA [Concomitant]
     Active Substance: PREGABALIN
  3. GEMCITABINE [Suspect]
     Active Substance: GEMCITABINE\GEMCITABINE HYDROCHLORIDE
     Indication: SQUAMOUS CELL CARCINOMA OF LUNG
     Route: 042
  4. ZOCOR [Concomitant]
     Active Substance: SIMVASTATIN

REACTIONS (7)
  - Acute myocardial infarction [Recovering/Resolving]
  - Antiphospholipid syndrome [Recovering/Resolving]
  - Platelet transfusion [Recovering/Resolving]
  - Transfusion [Recovering/Resolving]
  - Plasmapheresis [Recovering/Resolving]
  - Blood creatinine increased [Recovering/Resolving]
  - Thrombotic microangiopathy [Recovering/Resolving]
